FAERS Safety Report 10332147 (Version 1)
Quarter: 2014Q3

REPORT INFORMATION
  Report Type: Spontaneous
  Country: CA (occurrence: None)
  Receive Date: 20140721
  Receipt Date: 20140721
  Transmission Date: 20150326
  Serious: Yes (Other)
  Sender: FDA-Public Use
  Company Number: None

PATIENT
  Age: 30 Year
  Sex: Female
  Weight: 70.31 kg

DRUGS (1)
  1. BENZACLIN [Suspect]
     Active Substance: BENZOYL PEROXIDE\CLINDAMYCIN PHOSPHATE
     Indication: SELF ESTEEM DECREASED
     Dosage: 50G?APPLY AT BED TIME?ON SKIN
     Route: 061
     Dates: start: 20140110, end: 20140304

REACTIONS (3)
  - Psychiatric symptom [None]
  - Pigmentation disorder [None]
  - Skin discolouration [None]
